FAERS Safety Report 5230627-9 (Version None)
Quarter: 2007Q1

REPORT INFORMATION
  Report Type: 
  Country: None (occurrence: None)
  Receive Date: 20070206
  Receipt Date: 20070131
  Transmission Date: 20070707
  Serious: Yes (Hospitalization)
  Sender: FDA-Public Use
  Company Number: GB-GLAXOSMITHKLINE-B0359491A

PATIENT
  Sex: Female

DRUGS (5)
  1. SEROXAT [Suspect]
     Route: 065
  2. CHLORPROMAZINE [Concomitant]
     Route: 065
  3. PROTHIADEN [Concomitant]
     Route: 065
     Dates: start: 19940101
  4. DOTHIEPIN HYDROCHLORIDE [Concomitant]
     Route: 065
     Dates: start: 19940101
  5. LOFEPRAMINE [Concomitant]
     Route: 065
     Dates: start: 19940101

REACTIONS (14)
  - AGGRESSION [None]
  - COMPLETED SUICIDE [None]
  - DEPRESSION [None]
  - DIZZINESS [None]
  - DRUG WITHDRAWAL SYNDROME [None]
  - DRY MOUTH [None]
  - EARLY MORNING AWAKENING [None]
  - HALLUCINATION, AUDITORY [None]
  - HYPERHIDROSIS [None]
  - INSOMNIA [None]
  - NAUSEA [None]
  - OVERDOSE [None]
  - SLEEP DISORDER [None]
  - SUICIDAL IDEATION [None]
